FAERS Safety Report 5023579-8 (Version None)
Quarter: 2006Q2

REPORT INFORMATION
  Report Type: 
  Country: None (occurrence: None)
  Receive Date: 20060612
  Receipt Date: 20060412
  Transmission Date: 20061013
  Serious: Yes (Other)
  Sender: FDA-Public Use
  Company Number: PHBS2006BE05654

PATIENT
  Age: 84 Year
  Sex: Female

DRUGS (1)
  1. ZOMETA [Suspect]
     Indication: MULTIPLE MYELOMA
     Dosage: 3 MG, EVERY 4 WEEKS
     Route: 065
     Dates: start: 20021119, end: 20040419

REACTIONS (2)
  - OSTEONECROSIS [None]
  - WOUND DEBRIDEMENT [None]
